FAERS Safety Report 21044928 (Version 1)
Quarter: 2022Q3

REPORT INFORMATION
  Report Type: Spontaneous
  Country: US (occurrence: US)
  Receive Date: 20220705
  Receipt Date: 20220705
  Transmission Date: 20221026
  Serious: Yes (Hospitalization)
  Sender: FDA-Public Use
  Company Number: US-Vifor (International) Inc.-VIT-2022-04559

PATIENT
  Age: 66 Year
  Sex: Female

DRUGS (4)
  1. VELTASSA [Suspect]
     Active Substance: PATIROMER
     Indication: Hyperkalaemia
     Dosage: DISSOLVE 1 PACKET INTO 1/3 CUP OF WATER AND DRINK FULL AMOUNT ONCE DAILY
     Route: 048
     Dates: start: 202206
  2. INCIVEK [Concomitant]
     Active Substance: TELAPREVIR
  3. PEGASYS [Concomitant]
     Active Substance: PEGINTERFERON ALFA-2A
     Dosage: 180 MCG/M
  4. RIBASPHERE [Concomitant]
     Active Substance: RIBAVIRIN

REACTIONS (2)
  - Hospitalisation [Unknown]
  - Product dose omission issue [Unknown]
